FAERS Safety Report 18175318 (Version 1)
Quarter: 2020Q3

REPORT INFORMATION
  Report Type: Spontaneous
  Country: US (occurrence: US)
  Receive Date: 20200820
  Receipt Date: 20200820
  Transmission Date: 20201103
  Serious: No
  Sender: FDA-Public Use
  Company Number: None

PATIENT
  Age: 17 Year
  Sex: Male
  Weight: 65.25 kg

DRUGS (5)
  1. GAMUNEX?C [Suspect]
     Active Substance: HUMAN IMMUNOGLOBULIN G
     Indication: CHRONIC INFLAMMATORY DEMYELINATING POLYRADICULONEUROPATHY
     Dosage: ?          OTHER FREQUENCY:Q4W;?
     Route: 042
     Dates: start: 20200812, end: 20200812
  2. ACETAMINOPHEN 325 MG PO [Concomitant]
     Dates: start: 20200812, end: 20200812
  3. SODIUM CHLORIDE 0.9% 1000 ML [Concomitant]
     Dates: start: 20200812, end: 20200812
  4. GAMUNEX?C [Suspect]
     Active Substance: HUMAN IMMUNOGLOBULIN G
     Indication: CHRONIC INFLAMMATORY DEMYELINATING POLYRADICULONEUROPATHY
     Dosage: ?          OTHER FREQUENCY:Q4W;?
     Route: 042
     Dates: start: 20200812, end: 20200812
  5. DIPHENHYDRAMINE 50 MG PO [Concomitant]
     Dates: start: 20200812, end: 20200812

REACTIONS (3)
  - Pruritus [None]
  - Rash macular [None]
  - Infusion related reaction [None]

NARRATIVE: CASE EVENT DATE: 20200812
